FAERS Safety Report 7351917-X (Version None)
Quarter: 2011Q1

REPORT INFORMATION
  Report Type: 
  Country: None (occurrence: None)
  Receive Date: 20110315
  Receipt Date: 20110302
  Transmission Date: 20110831
  Serious: Yes (Death, Hospitalization)
  Sender: FDA-Public Use
  Company Number: US-JNJFOC-20100704288

PATIENT
  Age: 29 Year
  Sex: Female

DRUGS (5)
  1. VIDEX [Concomitant]
     Route: 065
  2. BACTRIM [Concomitant]
     Route: 065
  3. ZITHROMAX [Concomitant]
     Route: 065
  4. INTELENCE [Suspect]
     Indication: HIV INFECTION
     Route: 048
  5. ISENTRESS [Concomitant]
     Route: 065

REACTIONS (4)
  - STEVENS-JOHNSON SYNDROME [None]
  - RASH [None]
  - DEATH [None]
  - DRUG ADMINISTRATION ERROR [None]
